FAERS Safety Report 9536997 (Version 1)
Quarter: 2013Q3

REPORT INFORMATION
  Report Type: Spontaneous
  Country: US (occurrence: None)
  Receive Date: 20130918
  Receipt Date: 20130918
  Transmission Date: 20140515
  Serious: Yes (Other)
  Sender: FDA-Public Use
  Company Number: None

PATIENT
  Age: 39 Year
  Sex: Female

DRUGS (1)
  1. TECFIDERA 120 MG BIOGEN [Suspect]
     Indication: MULTIPLE SCLEROSIS
     Dosage: 1 CAPSULE BID ORAL
     Route: 048
     Dates: start: 20130911, end: 20130911

REACTIONS (8)
  - Hypersensitivity [None]
  - Chest discomfort [None]
  - Sensation of heaviness [None]
  - Eye pruritus [None]
  - Pruritus [None]
  - Flushing [None]
  - Chills [None]
  - Swollen tongue [None]
